FAERS Safety Report 8862184 (Version 1)
Quarter: 2012Q4

REPORT INFORMATION
  Report Type: 
  Country: GB (occurrence: GB)
  Receive Date: 20121026
  Receipt Date: 20121026
  Transmission Date: 20130627
  Serious: Yes (Other)
  Sender: FDA-Public Use
  Company Number: GB-PFIZER INC-2012264730

PATIENT
  Age: 31 Year
  Sex: Female
  Weight: 91 kg

DRUGS (3)
  1. CHAMPIX [Suspect]
     Indication: SMOKING CESSATION THERAPY
     Dosage: 1 mg, UNK
     Route: 048
     Dates: start: 20120927, end: 20121007
  2. ALCOHOL [Interacting]
     Dosage: UNK
  3. DEPO-PROVERA [Concomitant]
     Indication: CONTRACEPTION
     Dosage: 150 mg/ ml
     Route: 030
     Dates: start: 2008

REACTIONS (4)
  - Abnormal behaviour [Recovered/Resolved]
  - Aggression [Recovered/Resolved]
  - Memory impairment [Recovered/Resolved]
  - Alcohol interaction [Recovered/Resolved]
